FAERS Safety Report 12045382 (Version 3)
Quarter: 2017Q2

REPORT INFORMATION
  Report Type: Spontaneous
  Country: US (occurrence: US)
  Receive Date: 20160208
  Receipt Date: 20170417
  Transmission Date: 20170829
  Serious: Yes (Death, Hospitalization, Other)
  Sender: FDA-Public Use
  Company Number: US-ELI_LILLY_AND_COMPANY-US201602001192

PATIENT
  Age: 53 Year
  Sex: Male
  Weight: 99.77 kg

DRUGS (4)
  1. TESTOSTERONE                       /00103103/ [Suspect]
     Active Substance: TESTOSTERONE
     Indication: BLOOD TESTOSTERONE DECREASED
     Dosage: 200 MG, EVERY 2 WEEKS
     Route: 030
     Dates: start: 201110, end: 201203
  2. ANDROGEL [Suspect]
     Active Substance: TESTOSTERONE
     Indication: BLOOD TESTOSTERONE DECREASED
     Dosage: 2 DF, QD
     Route: 065
     Dates: start: 201204
  3. ANDROGEL [Suspect]
     Active Substance: TESTOSTERONE
     Indication: BLOOD TESTOSTERONE DECREASED
     Dosage: 4 DF, QD
     Route: 065
     Dates: end: 201303
  4. AXIRON [Suspect]
     Active Substance: TESTOSTERONE
     Indication: BLOOD TESTOSTERONE DECREASED
     Dosage: 120 MG, QD
     Route: 065
     Dates: start: 20120815, end: 201209

REACTIONS (4)
  - Completed suicide [Fatal]
  - Cerebrovascular accident [Unknown]
  - Suicidal ideation [Unknown]
  - Cerebrovascular accident [Unknown]

NARRATIVE: CASE EVENT DATE: 20121125
